FAERS Safety Report 12896541 (Version 1)
Quarter: 2016Q4

REPORT INFORMATION
  Report Type: Spontaneous
  Country: US (occurrence: US)
  Receive Date: 20161028
  Receipt Date: 20161028
  Transmission Date: 20170207
  Serious: Yes (Other)
  Sender: FDA-Public Use
  Company Number: None

PATIENT
  Age: 61 Year
  Sex: Female
  Weight: 72 kg

DRUGS (7)
  1. MELOXICAM. [Concomitant]
     Active Substance: MELOXICAM
  2. ROBAXIN [Concomitant]
     Active Substance: METHOCARBAMOL
  3. ACETAMINOPHEN-COD#4 TEVA [Suspect]
     Active Substance: ACETAMINOPHEN\CODEINE PHOSPHATE
     Indication: PAIN
     Dosage: ?          QUANTITY:120 TABLET(S);?
     Route: 048
     Dates: start: 20160817, end: 20160926
  4. COMBIVENT [Concomitant]
     Active Substance: ALBUTEROL SULFATE\IPRATROPIUM BROMIDE
  5. PREMARIN [Concomitant]
     Active Substance: ESTROGENS, CONJUGATED
  6. ACYCLOVIR. [Concomitant]
     Active Substance: ACYCLOVIR
  7. SENNA [Concomitant]
     Active Substance: SENNA LEAF\SENNOSIDES\SENNOSIDES A AND B

REACTIONS (16)
  - Product quality issue [None]
  - Urine flow decreased [None]
  - Drug screen positive [None]
  - Dizziness [None]
  - Drug effect decreased [None]
  - Pruritus [None]
  - Nausea [None]
  - Dry mouth [None]
  - Tremor [None]
  - Scratch [None]
  - Skin disorder [None]
  - Erythema [None]
  - Hypopnoea [None]
  - Headache [None]
  - Anxiety [None]
  - Insomnia [None]

NARRATIVE: CASE EVENT DATE: 20160817
